FAERS Safety Report 12709695 (Version 2)
Quarter: 2016Q4

REPORT INFORMATION
  Report Type: Report from Study
  Country: ES (occurrence: ES)
  Receive Date: 20160902
  Receipt Date: 20161003
  Transmission Date: 20170207
  Serious: Yes (Hospitalization)
  Sender: FDA-Public Use
  Company Number: ES-EMD SERONO-8104203

PATIENT
  Sex: Male

DRUGS (1)
  1. SAIZEN [Suspect]
     Active Substance: SOMATROPIN
     Indication: GROWTH HORMONE DEFICIENCY
     Dosage: SAIZEN LIQUID
     Route: 058
     Dates: start: 20120221, end: 20160804

REACTIONS (3)
  - Eating disorder [Unknown]
  - Type 1 diabetes mellitus [Unknown]
  - Abdominal pain [Unknown]

NARRATIVE: CASE EVENT DATE: 201607
